FAERS Safety Report 16403885 (Version 1)
Quarter: 2019Q2

REPORT INFORMATION
  Report Type: Spontaneous
  Country: HU (occurrence: HU)
  Receive Date: 20190607
  Receipt Date: 20190607
  Transmission Date: 20190711
  Serious: Yes (Life-Threatening, Hospitalization, Other)
  Sender: FDA-Public Use
  Company Number: HU-BAYER-2019-108462

PATIENT
  Age: 24 Year
  Sex: Female

DRUGS (6)
  1. AZATHIOPRINE. [Concomitant]
     Active Substance: AZATHIOPRINE
  2. ACETAMINOPHEN. [Suspect]
     Active Substance: ACETAMINOPHEN
  3. METAMIZOLE [Suspect]
     Active Substance: METAMIZOLE
  4. ADALIMUMAB [Concomitant]
     Active Substance: ADALIMUMAB
  5. CIPROFLOXACIN. [Suspect]
     Active Substance: CIPROFLOXACIN
     Dosage: UNK
  6. METHYLPREDNISOLONE. [Concomitant]
     Active Substance: METHYLPREDNISOLONE
     Dosage: UNK

REACTIONS (6)
  - Prescription drug used without a prescription [None]
  - Intra-abdominal haemorrhage [None]
  - Drug-induced liver injury [None]
  - Gastrointestinal haemorrhage [None]
  - Abdominal compartment syndrome [None]
  - Hepatic encephalopathy [None]
